FAERS Safety Report 7875766-9 (Version None)
Quarter: 2011Q4

REPORT INFORMATION
  Report Type: 
  Country: None (occurrence: None)
  Receive Date: 20111031
  Receipt Date: 20111024
  Transmission Date: 20120403
  Serious: Yes (Hospitalization)
  Sender: FDA-Public Use
  Company Number: RU-BAYER-2011-102657

PATIENT
  Age: 45 Year
  Sex: Female

DRUGS (2)
  1. MIRENA [Suspect]
     Indication: ADENOMYOSIS
     Dosage: UNK
     Route: 015
     Dates: start: 20111001, end: 20111021
  2. MIRENA [Suspect]
     Indication: UTERINE LEIOMYOMA

REACTIONS (7)
  - PYREXIA [None]
  - UTERINE PERFORATION [None]
  - ABDOMINAL PAIN [None]
  - INFECTIOUS PERITONITIS [None]
  - ENDOMETRITIS [None]
  - SEPSIS [None]
  - TUBO-OVARIAN ABSCESS [None]
